FAERS Safety Report 12746206 (Version 2)
Quarter: 2016Q4

REPORT INFORMATION
  Report Type: Report from Study
  Country: US (occurrence: US)
  Receive Date: 20160915
  Receipt Date: 20161031
  Transmission Date: 20170207
  Serious: Yes (Death, Hospitalization, Other)
  Sender: FDA-Public Use
  Company Number: US-BAYER-2015-453816

PATIENT
  Age: 42 Year
  Sex: Male
  Weight: 90.7 kg

DRUGS (11)
  1. ADEMPAS [Suspect]
     Active Substance: RIOCIGUAT
     Indication: PULMONARY HYPERTENSION
     Dosage: UNK
     Route: 048
     Dates: start: 20150908
  2. ADEMPAS [Suspect]
     Active Substance: RIOCIGUAT
     Indication: PULMONARY HYPERTENSION
     Dosage: 1.5 MG, TID
     Route: 048
  3. ADEMPAS [Suspect]
     Active Substance: RIOCIGUAT
     Indication: PULMONARY HYPERTENSION
     Dosage: 2 MG, TID
     Route: 048
  4. ADEMPAS [Suspect]
     Active Substance: RIOCIGUAT
     Indication: PULMONARY HYPERTENSION
     Dosage: 2.5 MG, TID
     Route: 048
  5. REMODULIN [Suspect]
     Active Substance: TREPROSTINIL
     Dosage: UNK
  6. LETAIRIS [Concomitant]
     Active Substance: AMBRISENTAN
     Dosage: UNK
  7. ADEMPAS [Suspect]
     Active Substance: RIOCIGUAT
     Indication: PULMONARY HYPERTENSION
     Dosage: 2.5 MG, TID
     Route: 048
  8. APIXABAN [Concomitant]
     Active Substance: APIXABAN
     Dosage: UNK
  9. DILTIAZEM. [Concomitant]
     Active Substance: DILTIAZEM
     Dosage: UNK
  10. ADEMPAS [Suspect]
     Active Substance: RIOCIGUAT
     Indication: PULMONARY HYPERTENSION
     Dosage: 1 MG, TID
     Route: 048
  11. ADEMPAS [Suspect]
     Active Substance: RIOCIGUAT
     Indication: PULMONARY HYPERTENSION
     Dosage: 2.5 MG, TID
     Route: 048

REACTIONS (25)
  - Dysuria [Unknown]
  - Blood creatinine increased [None]
  - Injection site irritation [None]
  - Oedema peripheral [Unknown]
  - Headache [None]
  - Fluid overload [None]
  - Hospitalisation [None]
  - Swelling [Unknown]
  - Dysuria [None]
  - Dyspnoea [Unknown]
  - Asthenopia [None]
  - Death [Fatal]
  - Constipation [None]
  - Oliguria [None]
  - Renal failure [Unknown]
  - Injection site erythema [Unknown]
  - Diarrhoea [Unknown]
  - Renal impairment [None]
  - Fluid retention [Unknown]
  - Hospitalisation [Unknown]
  - Weight increased [None]
  - Infusion site pain [None]
  - Abdominal distension [Unknown]
  - Back pain [None]
  - Renal disorder [Unknown]

NARRATIVE: CASE EVENT DATE: 20160104
